FAERS Safety Report 12174300 (Version 1)
Quarter: 2016Q1

REPORT INFORMATION
  Report Type: Not Available
  Country: US (occurrence: US)
  Receive Date: 20160313
  Receipt Date: 20160313
  Transmission Date: 20160526
  Serious: Yes (Congenital Anomaly)
  Sender: FDA-Public Use
  Company Number: US-ANIPHARMA-2016-US-001141

PATIENT

DRUGS (7)
  1. ZIPRASIDONE. [Suspect]
     Active Substance: ZIPRASIDONE
     Dosage: 80 MG TWICE DAILY
     Route: 015
  2. LITHIUM CARBONATE (NON-SPECIFIC) [Suspect]
     Active Substance: LITHIUM
     Dosage: 300 MG THREE TIMES PER DAY
     Route: 015
  3. ARIPIPRAZOLE. [Suspect]
     Active Substance: ARIPIPRAZOLE
     Dosage: 25 MG DAILY
     Route: 015
  4. HALOPERIDOL. [Suspect]
     Active Substance: HALOPERIDOL
     Dosage: 10 MG TWICE DAILY
     Route: 015
  5. COCAINE [Suspect]
     Active Substance: COCAINE
     Route: 015
  6. MARIJUANA [Suspect]
     Active Substance: CANNABIS SATIVA SUBSP. INDICA TOP
     Route: 015
  7. UNSPECIFIED BENZODIAZEPINE [Suspect]
     Active Substance: BENZODIAZEPINE
     Route: 015

REACTIONS (3)
  - Microcephaly [Not Recovered/Not Resolved]
  - Foetal exposure during pregnancy [Unknown]
  - Hypospadias [Not Recovered/Not Resolved]
